FAERS Safety Report 25231790 (Version 1)
Quarter: 2025Q2

REPORT INFORMATION
  Report Type: Spontaneous
  Country: PL (occurrence: PL)
  Receive Date: 20250423
  Receipt Date: 20250423
  Transmission Date: 20250716
  Serious: Yes (Life-Threatening)
  Sender: B BRAUN
  Company Number: PL-B.Braun Medical Inc.-2175489

PATIENT
  Age: 54 Year
  Weight: 70 kg

DRUGS (5)
  1. ACETAMINOPHEN [Suspect]
     Active Substance: ACETAMINOPHEN
  2. LITHIUM [Suspect]
     Active Substance: LITHIUM
  3. PREGABALIN [Suspect]
     Active Substance: PREGABALIN
  4. HYDROXYZINE HYDROCHLORIDE [Suspect]
     Active Substance: HYDROXYZINE HYDROCHLORIDE
  5. VENLAFAXINE [Suspect]
     Active Substance: VENLAFAXINE HYDROCHLORIDE

REACTIONS (2)
  - Somnolence [Recovered/Resolved]
  - Unresponsive to stimuli [Recovered/Resolved]
